FAERS Safety Report 5605799-4 (Version None)
Quarter: 2008Q1

REPORT INFORMATION
  Report Type: 
  Country: None (occurrence: None)
  Receive Date: 20080129
  Receipt Date: 20080125
  Transmission Date: 20080703
  Serious: Yes (Life-Threatening)
  Sender: FDA-Public Use
  Company Number: GB-JNJFOC-20071005021

PATIENT
  Sex: Female
  Weight: 62 kg

DRUGS (3)
  1. CAELYX [Suspect]
     Indication: OVARIAN CANCER
     Dosage: CYCLE 1, 40 MG/M2 OVER 4 HOURS
     Route: 042
  2. PREDNISOLONE [Concomitant]
     Indication: SARCOIDOSIS
     Route: 048
  3. DIDRONEL [Concomitant]
     Indication: OSTEOPOROSIS
     Route: 048

REACTIONS (2)
  - CARDIAC FAILURE [None]
  - MYOCARDIAL ISCHAEMIA [None]
